FAERS Safety Report 20732887 (Version 1)
Quarter: 2022Q2

REPORT INFORMATION
  Report Type: Spontaneous
  Country: GB (occurrence: ES)
  Receive Date: 20220420
  Receipt Date: 20220420
  Transmission Date: 20220721
  Serious: Yes (Other)
  Sender: FDA-Public Use
  Company Number: GB-BEH-2022144062

PATIENT
  Age: 14 Year
  Sex: Male

DRUGS (1)
  1. HUMAN C1-ESTERASE INHIBITOR [Suspect]
     Active Substance: HUMAN C1-ESTERASE INHIBITOR
     Indication: Prophylaxis
     Dosage: ON-DEMAND AND PROPHYLACTIC
     Route: 042

REACTIONS (5)
  - Anxiety [Unknown]
  - Drug ineffective [Unknown]
  - No adverse event [Unknown]
  - Off label use [Unknown]
  - Drug ineffective for unapproved indication [Unknown]
